FAERS Safety Report 6622905-3 (Version None)
Quarter: 2010Q1

REPORT INFORMATION
  Report Type: 
  Country: None (occurrence: None)
  Receive Date: 20100310
  Receipt Date: 20100104
  Transmission Date: 20100710
  Serious: No
  Sender: FDA-Public Use
  Company Number: US-BIOGENIDEC-2010BI000119

PATIENT
  Age: 41 Year
  Sex: Female

DRUGS (3)
  1. AVONEX [Suspect]
     Indication: MULTIPLE SCLEROSIS
     Route: 030
     Dates: start: 19970101, end: 20020101
  2. AVONEX [Suspect]
     Route: 030
     Dates: start: 20030201, end: 20030101
  3. AVONEX [Suspect]
     Route: 030
     Dates: start: 20030101

REACTIONS (4)
  - FACIAL BONES FRACTURE [None]
  - JOINT SPRAIN [None]
  - SPORTS INJURY [None]
  - UPPER LIMB FRACTURE [None]
